FAERS Safety Report 11517103 (Version 1)
Quarter: 2015Q3

REPORT INFORMATION
  Report Type: Spontaneous
  Country: US (occurrence: None)
  Receive Date: 20150916
  Receipt Date: 20150916
  Transmission Date: 20151125
  Serious: Yes (Life-Threatening, Other)
  Sender: FDA-Public Use
  Company Number: None

PATIENT
  Age: 27 Year
  Sex: Male
  Weight: 129.28 kg

DRUGS (3)
  1. PAXIL [Concomitant]
     Active Substance: PAROXETINE HYDROCHLORIDE
  2. LEXAPRO [Concomitant]
     Active Substance: ESCITALOPRAM OXALATE
  3. NEURONTIN [Suspect]
     Active Substance: GABAPENTIN
     Indication: FATIGUE
     Dosage: 90 PER BOTTLE 3 TIMES/DAY BY MOUTH
     Route: 048
     Dates: start: 20150811, end: 20150829

REACTIONS (3)
  - Drug withdrawal syndrome [None]
  - Headache [None]
  - Feeling abnormal [None]

NARRATIVE: CASE EVENT DATE: 20150908
